FAERS Safety Report 18367977 (Version 1)
Quarter: 2020Q4

REPORT INFORMATION
  Report Type: Spontaneous
  Country: US (occurrence: US)
  Receive Date: 20201009
  Receipt Date: 20201009
  Transmission Date: 20210114
  Serious: Yes (Other)
  Sender: FDA-Public Use
  Company Number: US-ASTRAZENECA-2020SF30401

PATIENT
  Sex: Male

DRUGS (1)
  1. OSIMERTIMIB [Suspect]
     Active Substance: OSIMERTINIB
     Route: 048

REACTIONS (3)
  - Squamous cell carcinoma of the tongue [Recovered/Resolved]
  - Lung adenocarcinoma [Recovering/Resolving]
  - Oesophageal adenocarcinoma [Recovering/Resolving]
